FAERS Safety Report 14892169 (Version 10)
Quarter: 2023Q1

REPORT INFORMATION
  Report Type: Spontaneous
  Country: US (occurrence: US)
  Receive Date: 20180514
  Receipt Date: 20230131
  Transmission Date: 20230417
  Serious: Yes (Other)
  Sender: FDA-Public Use
  Company Number: US-PFIZER INC-2018193304

PATIENT
  Age: 67 Year
  Sex: Female

DRUGS (2)
  1. XELJANZ XR [Suspect]
     Active Substance: TOFACITINIB CITRATE
     Dosage: 11 MG
  2. XELJANZ XR [Suspect]
     Active Substance: TOFACITINIB CITRATE
     Dosage: 11 MG, 1X/DAY
     Route: 048

REACTIONS (9)
  - Choking [Unknown]
  - Product prescribing error [Unknown]
  - Nasopharyngitis [Unknown]
  - Speech disorder [Unknown]
  - Pain in extremity [Unknown]
  - Fluid retention [Unknown]
  - Dizziness [Unknown]
  - COVID-19 [Recovered/Resolved]
  - Cough [Unknown]
